FAERS Safety Report 8591340-3 (Version None)
Quarter: 2012Q3

REPORT INFORMATION
  Report Type: 
  Country: None (occurrence: None)
  Receive Date: 20120814
  Receipt Date: 20120803
  Transmission Date: 20120928
  Serious: Yes (Other)
  Sender: FDA-Public Use
  Company Number: US-BRISTOL-MYERS SQUIBB COMPANY-16713950

PATIENT
  Age: 68 Year
  Sex: Female
  Weight: 89 kg

DRUGS (1)
  1. YERVOY [Suspect]
     Indication: METASTATIC OCULAR MELANOMA
     Dosage: OCT2010-DEC2010 LAST INFUSION ON:25JUN12 NO OF INF:4
     Dates: start: 20101001

REACTIONS (3)
  - COLITIS [None]
  - HEPATIC ENZYME INCREASED [None]
  - MACULAR FIBROSIS [None]
